FAERS Safety Report 5715946-1 (Version None)
Quarter: 2008Q2

REPORT INFORMATION
  Report Type: 
  Country: None (occurrence: None)
  Receive Date: 20080424
  Receipt Date: 20080421
  Transmission Date: 20081010
  Serious: Yes (Hospitalization)
  Sender: FDA-Public Use
  Company Number: SE-ASTRAZENECA-2008SE02056

PATIENT
  Age: 30504 Day
  Sex: Female

DRUGS (2)
  1. METOPROLOL TARTRATE [Suspect]
     Route: 048
  2. DIGOXIN [Interacting]
     Route: 048
     Dates: end: 20080129

REACTIONS (3)
  - BRADYCARDIA [None]
  - DRUG INTERACTION [None]
  - DRUG THERAPEUTIC INCOMPATIBILITY [None]
